FAERS Safety Report 4815926-4 (Version None)
Quarter: 2005Q4

REPORT INFORMATION
  Report Type: 
  Country: None (occurrence: None)
  Receive Date: 20051031
  Receipt Date: 20051025
  Transmission Date: 20060501
  Serious: Yes (Hospitalization)
  Sender: FDA-Public Use
  Company Number: US-SANOFI-SYNTHELABO-D01200507369

PATIENT
  Sex: Male
  Weight: 54.8 kg

DRUGS (8)
  1. OXALIPLATIN [Suspect]
     Route: 042
     Dates: start: 20051010, end: 20051010
  2. FLUOROURACIL [Suspect]
     Dosage: 400 MG/M2 IN A 2-4 MINUTES IV BOLUS FOLLOWED BY 600 MG/M2 IN A 22 HOURS IV INFUSION) ON DAY 1 + 2
     Route: 042
     Dates: start: 20051009, end: 20051010
  3. LEUCOVORIN CALCIUM [Suspect]
     Route: 042
     Dates: start: 20051009, end: 20051010
  4. LIPITOR [Concomitant]
  5. AMIODARONE HCL [Concomitant]
  6. ENALAPRIL [Concomitant]
  7. RANITIDINE [Concomitant]
  8. ATENOLOL [Concomitant]

REACTIONS (2)
  - DIFFICULTY IN WALKING [None]
  - HYPOAESTHESIA [None]
